FAERS Safety Report 4527321-6 (Version None)
Quarter: 2004Q4

REPORT INFORMATION
  Report Type: 
  Country: None (occurrence: None)
  Receive Date: 20041130
  Receipt Date: 20041020
  Transmission Date: 20050328
  Serious: No
  Sender: FDA-Public Use
  Company Number: FABR-10844

PATIENT
  Age: 7 Year
  Sex: Male
  Weight: 21 kg

DRUGS (5)
  1. FABRAZYME [Suspect]
     Indication: FABRY'S DISEASE
     Dosage: 25 MG Q2WKS IV
     Route: 042
     Dates: start: 20040623
  2. ACETAMINOPHEN [Concomitant]
  3. DIPHENHYDRAMINE [Concomitant]
  4. METOCLOPROMIDE [Concomitant]
  5. MULTI-VITAMIN [Concomitant]

REACTIONS (1)
  - DIARRHOEA [None]
